FAERS Safety Report 8413254-1 (Version None)
Quarter: 2012Q2

REPORT INFORMATION
  Report Type: 
  Country: None (occurrence: None)
  Receive Date: 20120605
  Receipt Date: 20120531
  Transmission Date: 20120825
  Serious: Yes (Hospitalization)
  Sender: FDA-Public Use
  Company Number: FR-PFIZER INC-2012130740

PATIENT
  Age: 75 Year
  Sex: Male

DRUGS (13)
  1. NICARDIPINE HYDROCHLORIDE [Concomitant]
     Dosage: UNK
  2. VITAMIN D [Concomitant]
     Dosage: UNK
  3. IMOVANE [Concomitant]
     Dosage: UNK
  4. LEVOFLOXACIN [Suspect]
     Indication: BRONCHOPNEUMONIA
     Dosage: UNK
     Route: 048
     Dates: start: 20120321, end: 20120402
  5. AUGMENTIN [Suspect]
     Indication: BRONCHOPNEUMONIA
     Dosage: UNK
     Route: 048
     Dates: start: 20120318, end: 20120402
  6. RABEPRAZOLE SODIUM [Concomitant]
     Dosage: UNK
  7. ATACAND [Concomitant]
     Dosage: UNK
  8. ATORVASTATIN [Suspect]
     Dosage: UNK
     Route: 048
     Dates: start: 20120315, end: 20120322
  9. ESCITALOPRAM [Concomitant]
     Dosage: UNK
  10. L THYROXINE ROCHE [Concomitant]
     Dosage: UNK
  11. GAVISCON [Concomitant]
     Dosage: UNK
  12. NEBIVOLOL HCL [Concomitant]
     Dosage: UNK
  13. ALPRAZOLAM [Concomitant]
     Dosage: UNK

REACTIONS (1)
  - TENDONITIS [None]
